FAERS Safety Report 25598656 (Version 2)
Quarter: 2025Q3

REPORT INFORMATION
  Report Type: Spontaneous
  Country: AU (occurrence: AU)
  Receive Date: 20250723
  Receipt Date: 20250829
  Transmission Date: 20251020
  Serious: Yes (Other)
  Sender: PIRAMAL
  Company Number: AU-PIRAMAL CRITICAL CARE LIMITED-2025-PPL-000435

PATIENT

DRUGS (1)
  1. SEVOFLURANE [Suspect]
     Active Substance: SEVOFLURANE
     Indication: Anaesthesia
     Dates: start: 2017

REACTIONS (3)
  - Rhabdomyolysis [Unknown]
  - Vascular insufficiency [Unknown]
  - Hyperthermia malignant [Unknown]

NARRATIVE: CASE EVENT DATE: 20170101
